FAERS Safety Report 24232432 (Version 1)
Quarter: 2024Q3

REPORT INFORMATION
  Report Type: Spontaneous
  Country: BO (occurrence: BO)
  Receive Date: 20240821
  Receipt Date: 20240821
  Transmission Date: 20241017
  Serious: Yes (Death)
  Sender: ROCHE
  Company Number: BO-ROCHE-10000048078

PATIENT
  Age: 80 Year

DRUGS (1)
  1. POLIVY [Suspect]
     Active Substance: POLATUZUMAB VEDOTIN-PIIQ
     Indication: Product used for unknown indication
     Dosage: DOSE AND FREQUENCY WERE NOT REPORTED
     Route: 065
     Dates: start: 20240612

REACTIONS (1)
  - Death [Fatal]

NARRATIVE: CASE EVENT DATE: 20240708
